FAERS Safety Report 10041115 (Version 1)
Quarter: 2014Q1

REPORT INFORMATION
  Report Type: Report from Study
  Country: CA (occurrence: CA)
  Receive Date: 20140327
  Receipt Date: 20140327
  Transmission Date: 20141002
  Serious: Yes (Disabling)
  Sender: FDA-Public Use
  Company Number: PHHY2014CA036265

PATIENT
  Sex: Female

DRUGS (1)
  1. SANDOSTATIN LAR (PATIENT BASIS) [Suspect]
     Indication: ACROMEGALY
     Dosage: 20 MG, BIW (EVERY TWO WEEKS)
     Route: 030
     Dates: start: 20090921

REACTIONS (1)
  - Malaise [Unknown]
